FAERS Safety Report 9120843 (Version 2)
Quarter: 2013Q1

REPORT INFORMATION
  Report Type: Spontaneous
  Country: AT (occurrence: AT)
  Receive Date: 20130226
  Receipt Date: 20130228
  Transmission Date: 20140127
  Serious: Yes (Other)
  Sender: FDA-Public Use
  Company Number: AT-PFIZER INC-2013069153

PATIENT
  Age: 46 Year
  Sex: Female

DRUGS (3)
  1. NEURONTIN [Suspect]
     Indication: TRIGEMINAL NEURALGIA
  2. AUGMENTIN [Suspect]
     Dosage: UNK
  3. MORPHINE [Concomitant]

REACTIONS (7)
  - Urinary tract infection [Unknown]
  - Enterococcus test positive [Unknown]
  - Liver function test abnormal [Unknown]
  - Tooth disorder [Unknown]
  - Dizziness [Unknown]
  - Back pain [Unknown]
  - Hyperhidrosis [Unknown]
